FAERS Safety Report 6431568-1 (Version None)
Quarter: 2009Q4

REPORT INFORMATION
  Report Type: 
  Country: None (occurrence: None)
  Receive Date: 20091103
  Receipt Date: 20091026
  Transmission Date: 20100525
  Serious: Yes (Other)
  Sender: FDA-Public Use
  Company Number: 2009SP023808

PATIENT
  Age: 66 Year
  Sex: Female

DRUGS (8)
  1. INTRON A [Suspect]
     Indication: MALIGNANT MELANOMA
     Dosage: 40 MIU;IV; 30 MIU; IV; 20 MIU; IV
     Route: 042
     Dates: start: 20090810, end: 20090816
  2. INTRON A [Suspect]
     Indication: MALIGNANT MELANOMA
     Dosage: 40 MIU;IV; 30 MIU; IV; 20 MIU; IV
     Route: 042
     Dates: start: 20090706
  3. INTRON A [Suspect]
     Indication: MALIGNANT MELANOMA
     Dosage: 40 MIU;IV; 30 MIU; IV; 20 MIU; IV
     Route: 042
     Dates: start: 20090727
  4. INTRON A [Suspect]
     Indication: MALIGNANT MELANOMA
     Dosage: 40 MIU;IV; 30 MIU; IV; 20 MIU; IV
     Route: 042
     Dates: start: 20090824
  5. EFFEXOR XR [Concomitant]
  6. AVANZA (MIRTAZAPINE) [Concomitant]
  7. PROCHLORPERAZINE MALEATE [Concomitant]
  8. PROCHLORPERAZINE MESILATE [Concomitant]

REACTIONS (9)
  - DYSGEUSIA [None]
  - FALL [None]
  - HEPATITIS [None]
  - MUSCULAR WEAKNESS [None]
  - ORTHOSTATIC HYPOTENSION [None]
  - PAIN [None]
  - PIGMENTATION DISORDER [None]
  - PLATELET COUNT INCREASED [None]
  - WHITE BLOOD CELL COUNT DECREASED [None]
